FAERS Safety Report 4523915-2 (Version None)
Quarter: 2005Q1

REPORT INFORMATION
  Report Type: 
  Country: None (occurrence: None)
  Receive Date: 20041209
  Receipt Date: 20041129
  Transmission Date: 20050727
  Serious: Yes (Death)
  Sender: FDA-Public Use
  Company Number: HQWYE160028OCT04

PATIENT
  Age: 29 Year
  Sex: Male
  Weight: 63.56 kg

DRUGS (6)
  1. EFFEXOR [Suspect]
     Indication: DEPRESSION
     Dosage: SEE IMAGE
     Route: 048
     Dates: start: 20040416, end: 20040422
  2. EFFEXOR [Suspect]
     Indication: DEPRESSION
     Dosage: SEE IMAGE
     Route: 048
     Dates: start: 20040423, end: 20040921
  3. LANTUS [Concomitant]
  4. GLYNASE [Concomitant]
  5. XANAX [Concomitant]
  6. ALCOHOL (ETHANOL) [Suspect]

REACTIONS (21)
  - ABNORMAL BEHAVIOUR [None]
  - BLOOD ALCOHOL INCREASED [None]
  - CHEST INJURY [None]
  - COMMINUTED FRACTURE [None]
  - COMPLETED SUICIDE [None]
  - CONTUSION [None]
  - DEPRESSED MOOD [None]
  - DISLOCATION OF VERTEBRA [None]
  - DRUG LEVEL INCREASED [None]
  - HEAD INJURY [None]
  - HEPATIC RUPTURE [None]
  - LACERATION [None]
  - LIMB TRAUMATIC AMPUTATION [None]
  - LOWER LIMB FRACTURE [None]
  - LUNG INJURY [None]
  - RENAL DISORDER [None]
  - RIB FRACTURE [None]
  - SOMNOLENCE [None]
  - SPINAL FRACTURE [None]
  - SPLENIC RUPTURE [None]
  - UPPER LIMB FRACTURE [None]
